FAERS Safety Report 19352755 (Version 5)
Quarter: 2021Q3

REPORT INFORMATION
  Report Type: Report from Study
  Country: US (occurrence: US)
  Receive Date: 20210531
  Receipt Date: 20210927
  Transmission Date: 20211014
  Serious: Yes (Other)
  Sender: FDA-Public Use
  Company Number: US-TAKEDA-2021TUS030131

PATIENT
  Age: 75 Year
  Sex: Female

DRUGS (1)
  1. VEDOLIZUMAB [Suspect]
     Active Substance: VEDOLIZUMAB
     Indication: CROHN^S DISEASE
     Dosage: 300 MILLIGRAM
     Route: 042
     Dates: start: 20210507

REACTIONS (22)
  - Proctalgia [Recovering/Resolving]
  - Retching [Recovering/Resolving]
  - Bone disorder [Unknown]
  - Feeling abnormal [Unknown]
  - Candida infection [Not Recovered/Not Resolved]
  - Oral herpes [Not Recovered/Not Resolved]
  - Eye pruritus [Recovering/Resolving]
  - Musculoskeletal discomfort [Recovered/Resolved]
  - Rectal fissure [Unknown]
  - Dehydration [Recovered/Resolved]
  - Arthralgia [Recovered/Resolved]
  - Dyspepsia [Unknown]
  - Loss of consciousness [Recovering/Resolving]
  - Abdominal pain [Recovered/Resolved]
  - Flatulence [Recovered/Resolved]
  - Fatigue [Recovered/Resolved]
  - Therapeutic reaction time decreased [Unknown]
  - Disorientation [Recovering/Resolving]
  - Headache [Recovered/Resolved]
  - Insomnia [Recovered/Resolved]
  - Back pain [Recovering/Resolving]
  - Nausea [Unknown]

NARRATIVE: CASE EVENT DATE: 20210507
